FAERS Safety Report 15251308 (Version 1)
Quarter: 2018Q3

REPORT INFORMATION
  Report Type: Spontaneous
  Country: AU (occurrence: AU)
  Receive Date: 20180807
  Receipt Date: 20180807
  Transmission Date: 20181010
  Serious: Yes (Other)
  Sender: FDA-Public Use
  Company Number: AU-ASTRAZENECA-2018SE40719

PATIENT
  Age: 60 Year
  Sex: Female
  Weight: 103 kg

DRUGS (1)
  1. SYMBICORT [Suspect]
     Active Substance: BUDESONIDE\FORMOTEROL FUMARATE DIHYDRATE
     Indication: ASTHMA
     Dosage: 200 UG UNKNOWN UNKNOWN
     Route: 055
     Dates: start: 20180324, end: 20180328

REACTIONS (5)
  - Dyspnoea [Recovering/Resolving]
  - Drug ineffective [Unknown]
  - Product packaging quantity issue [Unknown]
  - Wheezing [Recovering/Resolving]
  - Asthma [Unknown]
